FAERS Safety Report 4870334-5 (Version None)
Quarter: 2006Q1

REPORT INFORMATION
  Report Type: 
  Country: None (occurrence: None)
  Receive Date: 20060103
  Receipt Date: 20051222
  Transmission Date: 20060701
  Serious: Yes (Hospitalization, Other)
  Sender: FDA-Public Use
  Company Number: US-JNJFOC-20050906262

PATIENT
  Sex: Male
  Weight: 82.56 kg

DRUGS (5)
  1. REMICADE [Suspect]
     Indication: CROHN'S DISEASE
     Route: 042
  2. CIPRO [Concomitant]
  3. IMODIUM [Concomitant]
  4. PREVACID [Concomitant]
  5. ROWASA [Concomitant]

REACTIONS (5)
  - ARTHRALGIA [None]
  - BACK PAIN [None]
  - JOINT EFFUSION [None]
  - JOINT STIFFNESS [None]
  - PYREXIA [None]
